FAERS Safety Report 9867993 (Version 2)
Quarter: 2014Q1

REPORT INFORMATION
  Report Type: Spontaneous
  Country: DE (occurrence: DE)
  Receive Date: 20140204
  Receipt Date: 20140204
  Transmission Date: 20141002
  Serious: Yes (Hospitalization)
  Sender: FDA-Public Use
  Company Number: DE-BRISTOL-MYERS SQUIBB COMPANY-20144507

PATIENT
  Age: 79 Year
  Sex: Male
  Weight: 75 kg

DRUGS (7)
  1. ELIQUIS [Suspect]
     Indication: ATRIAL FIBRILLATION
     Dates: end: 20130617
  2. ACETYLSALICYLIC ACID [Suspect]
  3. BISOPROLOL [Concomitant]
     Indication: TACHYCARDIA
  4. IRBESARTAN [Concomitant]
  5. ATORVASTATIN [Concomitant]
  6. AMILORIDE [Concomitant]
     Dosage: 1DF: 2.5/25MG
  7. SYSTANE [Concomitant]
     Dosage: 1DF: EYE DROPS
     Route: 047

REACTIONS (3)
  - Liver function test abnormal [Unknown]
  - Humerus fracture [Unknown]
  - Fall [Unknown]
